FAERS Safety Report 14103387 (Version 1)
Quarter: 2017Q4

REPORT INFORMATION
  Report Type: Spontaneous
  Country: SE (occurrence: SE)
  Receive Date: 20171018
  Receipt Date: 20171018
  Transmission Date: 20180321
  Serious: Yes (Other)
  Sender: FDA-Public Use
  Company Number: SE-MYLANLABS-2017M1063716

PATIENT
  Age: 61 Year
  Sex: Male

DRUGS (18)
  1. SOLU-CORTEF [Suspect]
     Active Substance: HYDROCORTISONE SODIUM SUCCINATE
     Indication: PRODUCT USED FOR UNKNOWN INDICATION
     Dosage: DOSERING: 1 INJEKTIONSV?TSKA VID BEHOV
     Route: 042
     Dates: start: 20170731
  2. RITUXIMAB. [Concomitant]
     Active Substance: RITUXIMAB
  3. VINCRISTINE [Concomitant]
     Active Substance: VINCRISTINE
  4. DELTISON [Suspect]
     Active Substance: PREDNISONE
     Indication: PRODUCT USED FOR UNKNOWN INDICATION
     Dosage: ENLIGT SEPARAT SCHEMA 2 TABLETTER PA MORGONEN I 5 DAGAR I SAMBAND MED CELLGIFTER.
     Route: 048
     Dates: start: 20170731
  5. LEVAXIN [Concomitant]
     Active Substance: LEVOTHYROXINE SODIUM
  6. DAIVOBET [Concomitant]
     Active Substance: BETAMETHASONE DIPROPIONATE\CALCIPOTRIENE
  7. MOMETASON GLENMARK [Concomitant]
  8. PANODIL [Concomitant]
     Active Substance: ACETAMINOPHEN
  9. CYCLOPHOSPHAMID [Concomitant]
     Active Substance: CYCLOPHOSPHAMIDE
  10. ONDANSETRON [Concomitant]
     Active Substance: ONDANSETRON
  11. DOXORUBICIN [Concomitant]
     Active Substance: DOXORUBICIN
  12. ALBUMIN [Concomitant]
     Active Substance: ALBUMIN HUMAN
  13. DAIVOBET [Concomitant]
     Active Substance: BETAMETHASONE DIPROPIONATE\CALCIPOTRIENE
  14. OMEPRAZOL ACTAVIS [Concomitant]
     Active Substance: OMEPRAZOLE
  15. PRIMPERAN [Concomitant]
     Active Substance: METOCLOPRAMIDE HYDROCHLORIDE
  16. CETIRIZIN SANDOZ [Concomitant]
  17. AMLODIPINE [Concomitant]
     Active Substance: AMLODIPINE BESYLATE
  18. ALVEDON [Concomitant]
     Active Substance: ACETAMINOPHEN

REACTIONS (1)
  - Rosacea [Not Recovered/Not Resolved]

NARRATIVE: CASE EVENT DATE: 20170805
